FAERS Safety Report 4687466-7 (Version None)
Quarter: 2005Q2

REPORT INFORMATION
  Report Type: 
  Country: None (occurrence: None)
  Receive Date: 20050609
  Receipt Date: 20050609
  Transmission Date: 20051028
  Serious: No
  Sender: FDA-Public Use
  Company Number: None

PATIENT
  Sex: Female

DRUGS (2)
  1. COUMADIN [Suspect]
     Indication: CEREBROVASCULAR ACCIDENT
     Dosage: AS DIRECTED    DAILY    ORAL
     Route: 048
  2. COUMADIN [Suspect]
     Indication: EMBOLIC STROKE
     Dosage: AS DIRECTED    DAILY    ORAL
     Route: 048

REACTIONS (2)
  - EMBOLIC STROKE [None]
  - HYPERTENSION [None]
